FAERS Safety Report 18340280 (Version 2)
Quarter: 2020Q4

REPORT INFORMATION
  Report Type: Spontaneous
  Country: US (occurrence: US)
  Receive Date: 20201002
  Receipt Date: 20201013
  Transmission Date: 20210113
  Serious: Yes (Other)
  Sender: FDA-Public Use
  Company Number: US-PFIZER INC-2020376591

PATIENT
  Age: 73 Year
  Sex: Male

DRUGS (8)
  1. FENTANYL. [Suspect]
     Active Substance: FENTANYL
     Dosage: 37 UG (INCREASED)
  2. FENTANYL. [Suspect]
     Active Substance: FENTANYL
     Indication: PAIN
     Dosage: 25 UG
  3. FENTANYL. [Suspect]
     Active Substance: FENTANYL
     Dosage: 50 UG
  4. HYDROCODONE [Suspect]
     Active Substance: HYDROCODONE
     Indication: PAIN
     Dosage: 5 MG, 4X/DAY
  5. FENTANYL. [Suspect]
     Active Substance: FENTANYL
     Indication: PAIN
     Dosage: 12 UG (12-MCG PATCH THAT HE USED EVERY 3 DAYS)
  6. HYDROCODONE [Suspect]
     Active Substance: HYDROCODONE
     Dosage: 10 MG 1-2 TIMES A DAY
  7. HYDROCODONE [Suspect]
     Active Substance: HYDROCODONE
     Dosage: 7.5 MG, 4X/DAY
  8. HYDROCODONE [Suspect]
     Active Substance: HYDROCODONE
     Dosage: 10 MG, 4X/DAY

REACTIONS (1)
  - Drug use disorder [Unknown]
